FAERS Safety Report 7304915-6 (Version None)
Quarter: 2011Q1

REPORT INFORMATION
  Report Type: 
  Country: None (occurrence: None)
  Receive Date: 20110222
  Receipt Date: 20110214
  Transmission Date: 20110831
  Serious: No
  Sender: FDA-Public Use
  Company Number: US-PFIZER INC-2011032716

PATIENT
  Sex: Female
  Weight: 58.503 kg

DRUGS (3)
  1. ADVIL [Suspect]
     Indication: BACK PAIN
     Dosage: 600 MG, DAILY
     Route: 048
     Dates: start: 20110206, end: 20110201
  2. LIPITOR [Concomitant]
     Dosage: 20 MG, DAILY
  3. MOTRIN [Suspect]
     Indication: BACK PAIN
     Dosage: UNK
     Route: 048
     Dates: end: 20110205

REACTIONS (4)
  - EYE SWELLING [None]
  - HEADACHE [None]
  - ERYTHEMA [None]
  - PRURITUS [None]
